FAERS Safety Report 7118647-0 (Version None)
Quarter: 2010Q4

REPORT INFORMATION
  Report Type: 
  Country: None (occurrence: None)
  Receive Date: 20101123
  Receipt Date: 20101110
  Transmission Date: 20110411
  Serious: Yes (Hospitalization)
  Sender: FDA-Public Use
  Company Number: PHHY2010ZA76045

PATIENT
  Sex: Male

DRUGS (7)
  1. EXFORGE [Suspect]
     Dosage: FILM COATED TABLET, 160/5 MG
  2. RIDAQ [Concomitant]
     Indication: HYPERTENSION
     Dosage: 25 MG QMO, 12.5 MG QN
     Route: 048
     Dates: start: 20080101
  3. DISPRIN [Concomitant]
     Indication: ANTICOAGULANT THERAPY
     Dosage: 150 MG, QN
     Route: 048
     Dates: start: 20080101
  4. SPASMEND [Concomitant]
     Indication: PAIN
     Dosage: UNK
     Dates: start: 20101015, end: 20101030
  5. PARACETAMOL [Concomitant]
     Indication: PAIN
     Dosage: 1000 MG, Q8H
     Route: 048
     Dates: start: 20101015, end: 20101030
  6. PARACETAMOL W/PSEUDOEPHEDRINE HCL [Concomitant]
     Indication: ALLERGIC SINUSITIS
     Dosage: 2 TABLETS, 8 HOURLY, PRN
     Route: 048
     Dates: start: 20101109
  7. PARACETAMOL W/PSEUDOEPHEDRINE HCL [Concomitant]
     Indication: SEASONAL ALLERGY

REACTIONS (2)
  - BLOOD PRESSURE FLUCTUATION [None]
  - HERNIA HIATUS REPAIR [None]
